FAERS Safety Report 24981499 (Version 1)
Quarter: 2025Q1

REPORT INFORMATION
  Report Type: Spontaneous
  Country: US (occurrence: None)
  Receive Date: 20250217
  Receipt Date: 20250217
  Transmission Date: 20250409
  Serious: No
  Sender: FDA-CTU
  Company Number: None

PATIENT
  Age: 60 Year
  Sex: Female
  Weight: 61.2 kg

DRUGS (11)
  1. MIRTAZAPINE [Suspect]
     Active Substance: MIRTAZAPINE
     Indication: Insomnia
     Dosage: FREQUENCY : AT BEDTIME;?
     Route: 048
     Dates: start: 20230102, end: 20250212
  2. Bio hormone replacement therapy [Concomitant]
  3. AMBIEN [Concomitant]
     Active Substance: ZOLPIDEM TARTRATE
  4. VITAMIN C [Concomitant]
     Active Substance: ASCORBIC ACID
  5. VITAMIN D NOS [Concomitant]
     Active Substance: CHOLECALCIFEROL\ERGOCALCIFEROL
  6. MAGNESIUM GLYCINATE [Concomitant]
     Active Substance: MAGNESIUM GLYCINATE
  7. TRYPTOPHAN [Concomitant]
     Active Substance: TRYPTOPHAN
  8. TYROSINE [Concomitant]
     Active Substance: TYROSINE
  9. FISH OIL\OMEGA-3 FATTY ACIDS [Concomitant]
     Active Substance: FISH OIL\OMEGA-3 FATTY ACIDS
  10. NIACIN [Concomitant]
     Active Substance: NIACIN
  11. UNSPECIFIED INGREDIENT [Concomitant]
     Active Substance: UNSPECIFIED INGREDIENT

REACTIONS (4)
  - Withdrawal syndrome [None]
  - Insomnia [None]
  - Dyspnoea [None]
  - Decreased appetite [None]

NARRATIVE: CASE EVENT DATE: 20250115
